FAERS Safety Report 4501739-X (Version None)
Quarter: 2004Q4

REPORT INFORMATION
  Report Type: 
  Country: None (occurrence: None)
  Receive Date: 20040928
  Receipt Date: 20040830
  Transmission Date: 20050328
  Serious: No
  Sender: FDA-Public Use
  Company Number: 04P-163-0271843-00

PATIENT
  Age: 57 Year
  Sex: Female
  Weight: 104.3273 kg

DRUGS (10)
  1. HUMIRA [Suspect]
     Indication: RHEUMATOID ARTHRITIS
     Dosage: 40 MG, 1 IN 2 WEEK, SUBCUTANEOUS
     Route: 058
     Dates: start: 20040201, end: 20040401
  2. HUMIRA [Suspect]
     Indication: RHEUMATOID ARTHRITIS
     Dosage: 40 MG, 1 IN 2 WEEK, SUBCUTANEOUS
     Route: 058
     Dates: start: 20040601
  3. METHOTREXATE [Concomitant]
  4. TRAMADOL HCL [Concomitant]
  5. PARACETAMOL [Concomitant]
  6. QUINAPRIL HYDROCHLORIDE [Concomitant]
  7. CELECOXIB [Concomitant]
  8. SERTRALINE HYDROCHLORIDE [Concomitant]
  9. ZOCOR [Concomitant]
  10. OXYCODONE HCL [Concomitant]

REACTIONS (1)
  - SINUSITIS [None]
